FAERS Safety Report 17544684 (Version 1)
Quarter: 2020Q1

REPORT INFORMATION
  Report Type: Spontaneous
  Country: GB (occurrence: GB)
  Receive Date: 20200316
  Receipt Date: 20200316
  Transmission Date: 20200409
  Serious: Yes (Other)
  Sender: FDA-Public Use
  Company Number: GB-ACCORD-175294

PATIENT
  Age: 69 Year
  Sex: Male
  Weight: 124 kg

DRUGS (5)
  1. MIRTAZAPINE. [Concomitant]
     Active Substance: MIRTAZAPINE
     Dosage: TAKE HALF OR ONE (7.5MG-15MG) AT NIGHT
     Dates: start: 20190109
  2. ROSUVASTATIN. [Suspect]
     Active Substance: ROSUVASTATIN
     Indication: PRODUCT USED FOR UNKNOWN INDICATION
     Dates: start: 20191004
  3. HYDROCORTISONE. [Concomitant]
     Active Substance: HYDROCORTISONE
     Dosage: APPLY ONCE OR TWICE DAILY
     Route: 061
     Dates: start: 20140226
  4. SACUBITRIL [Concomitant]
     Active Substance: SACUBITRIL
     Dates: start: 20190426
  5. BISOPROLOL [Concomitant]
     Active Substance: BISOPROLOL
     Dates: start: 20190215

REACTIONS (1)
  - Wheezing [Unknown]

NARRATIVE: CASE EVENT DATE: 20191004
